FAERS Safety Report 20069015 (Version 1)
Quarter: 2021Q4

REPORT INFORMATION
  Report Type: Spontaneous
  Country: US (occurrence: US)
  Receive Date: 20211115
  Receipt Date: 20211115
  Transmission Date: 20220303
  Serious: Yes (Hospitalization)
  Sender: FDA-Public Use
  Company Number: US-PFIZER INC-202101508233

PATIENT
  Age: 76 Year
  Sex: Female

DRUGS (12)
  1. VYNDAMAX [Suspect]
     Active Substance: TAFAMIDIS
     Indication: Amyloidosis senile
     Dosage: 61 MG, DAILY
     Route: 048
     Dates: start: 20210324
  2. DIGOXIN [Concomitant]
     Active Substance: DIGOXIN
     Dosage: 125 UG
  3. NITROGLYCERIN [Concomitant]
     Active Substance: NITROGLYCERIN
     Dosage: 0.4 MG
     Route: 060
  4. PROAIR HFA [Concomitant]
     Active Substance: ALBUTEROL SULFATE
     Dosage: 90 (MCG), UNK
  5. FLOVENT HFA [Concomitant]
     Active Substance: FLUTICASONE PROPIONATE
     Dosage: 110 UG
  6. FLUTICASONE PROPIONATE [Concomitant]
     Active Substance: FLUTICASONE PROPIONATE
     Dosage: UNK
  7. SPIRONOLACTONE [Concomitant]
     Active Substance: SPIRONOLACTONE
     Dosage: 100 MG
  8. ELIQUIS [Concomitant]
     Active Substance: APIXABAN
     Dosage: 5 MG
  9. TORSEMIDE [Concomitant]
     Active Substance: TORSEMIDE
     Dosage: 10 MG
  10. METOPROLOL SUCCINATE [Concomitant]
     Active Substance: METOPROLOL SUCCINATE
     Dosage: UNK
  11. MUCINEX [Concomitant]
     Active Substance: GUAIFENESIN
     Dosage: 1200 MG (12H)
  12. TYLENOL EXTRA STRENGTH [Concomitant]
     Active Substance: ACETAMINOPHEN
     Dosage: UNK

REACTIONS (2)
  - Blister [Unknown]
  - Off label use [Unknown]

NARRATIVE: CASE EVENT DATE: 20210101
